FAERS Safety Report 11543529 (Version 2)
Quarter: 2016Q1

REPORT INFORMATION
  Report Type: Spontaneous
  Country: ZA (occurrence: ZA)
  Receive Date: 20150923
  Receipt Date: 20160113
  Transmission Date: 20160525
  Serious: Yes (Death, Hospitalization, Other)
  Sender: FDA-Public Use
  Company Number: PHHY2015ZA114714

PATIENT
  Age: 13 Year
  Sex: Male

DRUGS (2)
  1. VOLTAREN [Suspect]
     Active Substance: DICLOFENAC SODIUM
     Indication: ARTHRALGIA
     Dosage: UNK
     Route: 065
     Dates: start: 201508
  2. VOLTAREN [Suspect]
     Active Substance: DICLOFENAC SODIUM
     Indication: SWELLING

REACTIONS (10)
  - Varicella [Fatal]
  - Vision blurred [Unknown]
  - Chest pain [Unknown]
  - Chromaturia [Unknown]
  - Haemoptysis [Unknown]
  - Influenza like illness [Unknown]
  - Rash generalised [Unknown]
  - Malaise [Unknown]
  - Diarrhoea [Unknown]
  - Dyspnoea [Unknown]
